FAERS Safety Report 21349678 (Version 1)
Quarter: 2022Q3

REPORT INFORMATION
  Report Type: Spontaneous
  Country: DK (occurrence: DK)
  Receive Date: 20220919
  Receipt Date: 20220919
  Transmission Date: 20221027
  Serious: Yes (Other)
  Sender: FDA-Public Use
  Company Number: DK-BRISTOL-MYERS SQUIBB COMPANY-2022-103969

PATIENT
  Age: 67 Year
  Sex: Female

DRUGS (5)
  1. NIVOLUMAB [Suspect]
     Active Substance: NIVOLUMAB
     Indication: Metastatic malignant melanoma
     Dosage: DOSE : UNAVAILABLE;     FREQ : UNAVAILABLE
     Route: 065
     Dates: start: 202001
  2. IPILIMUMAB [Suspect]
     Active Substance: IPILIMUMAB
     Indication: Metastatic malignant melanoma
     Route: 065
  3. FEXOFENADINE [Concomitant]
     Active Substance: FEXOFENADINE HYDROCHLORIDE
  4. HYDROCORTISONE\MICONAZOLE NITRATE [Concomitant]
     Active Substance: HYDROCORTISONE\MICONAZOLE NITRATE
  5. LIDOCAINE [Concomitant]
     Active Substance: LIDOCAINE

REACTIONS (17)
  - Rash erythematous [Unknown]
  - Dysuria [Recovered/Resolved]
  - Erythema [Unknown]
  - Skin disorder [Unknown]
  - Skin burning sensation [Unknown]
  - Rash erythematous [Unknown]
  - Oral discomfort [Not Recovered/Not Resolved]
  - Discomfort [Unknown]
  - Feeding disorder [Unknown]
  - Haemorrhage [Unknown]
  - Skin atrophy [Unknown]
  - Ulcer [Unknown]
  - Stevens-Johnson syndrome [Unknown]
  - Wound [Unknown]
  - Scratch [Unknown]
  - Malignant neoplasm progression [Unknown]
  - Dysuria [Unknown]

NARRATIVE: CASE EVENT DATE: 20200121
